FAERS Safety Report 9475051 (Version 2)
Quarter: 2013Q4

REPORT INFORMATION
  Report Type: Spontaneous
  Country: US (occurrence: US)
  Receive Date: 20130824
  Receipt Date: 20131014
  Transmission Date: 20140711
  Serious: No
  Sender: FDA-Public Use
  Company Number: US-B.I. PHARMACEUTICALS,INC./RIDGEFIELD-2013-BI-25693BP

PATIENT
  Age: 76 Year
  Sex: Female

DRUGS (13)
  1. COMBIVENT [Suspect]
     Indication: CHRONIC OBSTRUCTIVE PULMONARY DISEASE
     Dosage: STRENGTH: 20 MCG / 100 MCG;
     Route: 055
     Dates: start: 20130805
  2. COMBIVENT [Suspect]
     Dosage: STRENGTH: 20 MCG / 100 MCG; DAILY DOSE: 80 MCG/ 400
     Route: 055
     Dates: start: 201307
  3. ADVAIR [Concomitant]
     Indication: CHRONIC OBSTRUCTIVE PULMONARY DISEASE
     Dosage: DOSE PER APPLICATION: 250/50; DAILY DOSE: 500/100
     Route: 055
  4. VERAPAMIL [Concomitant]
     Route: 048
  5. VALSARTAN HCTZ [Concomitant]
     Indication: HYPERTENSION
     Route: 048
  6. METOPROLOL [Concomitant]
     Route: 048
  7. REMIDEX [Concomitant]
     Route: 048
  8. XERALTO [Concomitant]
     Route: 048
  9. EMBREL [Concomitant]
     Indication: RHEUMATOID ARTHRITIS
     Route: 048
  10. CALCIUM [Concomitant]
     Route: 048
  11. MAGNESIUM [Concomitant]
     Route: 048
  12. PROBIOTIC [Concomitant]
     Route: 048
  13. CELEBREX [Concomitant]
     Route: 048

REACTIONS (1)
  - Drug ineffective [Not Recovered/Not Resolved]
